FAERS Safety Report 21868202 (Version 1)
Quarter: 2023Q1

REPORT INFORMATION
  Report Type: Report from Study
  Country: US (occurrence: US)
  Receive Date: 20230116
  Receipt Date: 20230116
  Transmission Date: 20230417
  Serious: Yes (Other)
  Sender: FDA-Public Use
  Company Number: US-ABBVIE-4270418

PATIENT
  Sex: Female

DRUGS (1)
  1. HUMIRA [Suspect]
     Active Substance: ADALIMUMAB
     Indication: Crohn^s disease
     Route: 058

REACTIONS (5)
  - Surgery [Unknown]
  - Gastric disorder [Unknown]
  - Rhinorrhoea [Recovering/Resolving]
  - Memory impairment [Not Recovered/Not Resolved]
  - Hypersensitivity [Recovering/Resolving]
